FAERS Safety Report 9320711 (Version 1)
Quarter: 2013Q2

REPORT INFORMATION
  Report Type: Spontaneous
  Country: US (occurrence: US)
  Receive Date: 20130531
  Receipt Date: 20130531
  Transmission Date: 20140414
  Serious: No
  Sender: FDA-Public Use
  Company Number: US-BIOGENIDEC-2013BI047714

PATIENT
  Age: 30 Year
  Sex: Female

DRUGS (1)
  1. TYSABRI [Suspect]
     Indication: MULTIPLE SCLEROSIS
     Route: 042
     Dates: start: 20120420, end: 20130326

REACTIONS (5)
  - Vertigo [Recovered/Resolved]
  - Balance disorder [Recovered/Resolved]
  - Crepitations [Not Recovered/Not Resolved]
  - Vestibular neuronitis [Recovered/Resolved]
  - Dizziness [Recovered/Resolved]
